FAERS Safety Report 19621561 (Version 1)
Quarter: 2021Q3

REPORT INFORMATION
  Report Type: Spontaneous
  Country: US (occurrence: US)
  Receive Date: 20210728
  Receipt Date: 20210728
  Transmission Date: 20211014
  Serious: Yes (Other)
  Sender: FDA-Public Use
  Company Number: US-NOVEN PHARMACEUTICALS, INC.-2020US006752

PATIENT
  Sex: Female
  Weight: 63.49 kg

DRUGS (4)
  1. COMBIPATCH [Suspect]
     Active Substance: ESTRADIOL\NORETHINDRONE ACETATE
     Dosage: 0.05/0.25 MG/ DAY 1/WEEK
     Route: 062
     Dates: start: 202006, end: 202009
  2. COMBIPATCH [Suspect]
     Active Substance: ESTRADIOL\NORETHINDRONE ACETATE
     Indication: MENOPAUSAL SYMPTOMS
     Dosage: 0.05/0.25 MG/ DAY, 2/WEEK
     Route: 062
     Dates: start: 202009
  3. COMBIPATCH [Suspect]
     Active Substance: ESTRADIOL\NORETHINDRONE ACETATE
     Dosage: 0.05/0.25 MG/ DAY, 2/WEEK
     Route: 062
     Dates: start: 2017, end: 202006
  4. TIROSINT [Concomitant]
     Active Substance: LEVOTHYROXINE SODIUM
     Indication: HYPOTHYROIDISM
     Dosage: UNK, DAILY
     Route: 048

REACTIONS (5)
  - Product adhesion issue [Recovered/Resolved]
  - Wrong technique in product usage process [Not Recovered/Not Resolved]
  - Product packaging quantity issue [Recovered/Resolved]
  - Blood oestrogen decreased [Recovered/Resolved]
  - Off label use [Recovered/Resolved]

NARRATIVE: CASE EVENT DATE: 2020
